FAERS Safety Report 8078496-6 (Version None)
Quarter: 2012Q1

REPORT INFORMATION
  Report Type: 
  Country: None (occurrence: None)
  Receive Date: 20120127
  Receipt Date: 20110314
  Transmission Date: 20120608
  Serious: No
  Sender: FDA-Public Use
  Company Number: PR-ABBOTT-11P-131-0707897-00

PATIENT
  Sex: Female
  Weight: 50.848 kg

DRUGS (7)
  1. HUMIRA [Suspect]
     Indication: PRODUCT USED FOR UNKNOWN INDICATION
     Route: 058
     Dates: start: 20110101
  2. AMBIEN [Concomitant]
     Indication: SLEEP DISORDER THERAPY
     Dosage: 12.5 MG ONE TABLET DAILY
     Route: 048
  3. METHOTREXATE [Concomitant]
     Indication: RHEUMATOID ARTHRITIS
     Dosage: 0.5 ML WEEKLY
     Route: 058
  4. CELEBREX [Concomitant]
     Indication: RHEUMATOID ARTHRITIS
     Dosage: 400 MG
     Route: 048
  5. NORFLEX [Concomitant]
     Indication: FIBROMYALGIA
     Route: 048
  6. PROZAC [Concomitant]
     Indication: DEPRESSION
     Dosage: 40 MG
     Route: 048
  7. KLONOPIN [Concomitant]
     Indication: DEPRESSION
     Dosage: 0.5MG; 1 IN MORNING AND BEFORE SLEEP
     Route: 048

REACTIONS (6)
  - ABDOMINAL PAIN UPPER [None]
  - DYSPEPSIA [None]
  - PAIN [None]
  - ALOPECIA [None]
  - GASTRITIS [None]
  - DYSMENORRHOEA [None]
